FAERS Safety Report 12376966 (Version 1)
Quarter: 2016Q2

REPORT INFORMATION
  Report Type: Report from Study
  Country: US (occurrence: US)
  Receive Date: 20160517
  Receipt Date: 20160517
  Transmission Date: 20160815
  Serious: No
  Sender: FDA-Public Use
  Company Number: US-MALLINCKRODT-T201503961

PATIENT
  Age: 66 Year
  Sex: Female

DRUGS (1)
  1. REPOSITORY CORTICOTROPIN INJECTION [Suspect]
     Active Substance: CORTICOTROPIN
     Indication: PROTEINURIA
     Dosage: 80 UNITS TWICE WKLY
     Route: 058
     Dates: start: 20150517

REACTIONS (6)
  - Injection site bruising [Unknown]
  - Blood creatinine increased [Unknown]
  - Dry mouth [Unknown]
  - Weight increased [Unknown]
  - Dysgeusia [Unknown]
  - Injection site fibrosis [Unknown]

NARRATIVE: CASE EVENT DATE: 20150813
